FAERS Safety Report 7580776 (Version 2)
Quarter: 2013Q2

REPORT INFORMATION
  Report Type: Report from Study
  Country: DE (occurrence: DE)
  Receive Date: 20100910
  Receipt Date: 20130423
  Transmission Date: 20140414
  Serious: Yes (Death, Hospitalization)
  Sender: FDA-Public Use
  Company Number: DE-ROCHE-725327

PATIENT
  Age: 67 Year
  Sex: Male
  Weight: 58 kg

DRUGS (5)
  1. CAPECITABINE [Suspect]
     Indication: METASTATIC GASTRIC CANCER
     Route: 048
     Dates: start: 20100719, end: 20100813
  2. OXALIPLATIN [Suspect]
     Indication: METASTATIC GASTRIC CANCER
     Route: 042
  3. EPIRUBICIN [Suspect]
     Indication: METASTATIC GASTRIC CANCER
     Route: 042
  4. ACICLOVIR [Suspect]
     Indication: HERPES SIMPLEX
     Route: 048
     Dates: start: 20100729, end: 20100813
  5. ASS [Concomitant]
     Indication: CORONARY ARTERY DISEASE
     Route: 048

REACTIONS (8)
  - Embolic stroke [Fatal]
  - Colitis [Unknown]
  - Enteritis [Unknown]
  - Leukopenia [Unknown]
  - Neutropenia [Unknown]
  - Abdominal pain [Unknown]
  - Diarrhoea [Unknown]
  - Cerebrovascular accident [Fatal]
